FAERS Safety Report 22028930 (Version 16)
Quarter: 2025Q3

REPORT INFORMATION
  Report Type: Report from Study
  Country: US (occurrence: US)
  Receive Date: 20230223
  Receipt Date: 20250715
  Transmission Date: 20251021
  Serious: Yes (Hospitalization, Other)
  Sender: TAKEDA
  Company Number: US-TAKEDA-2023TUS018551

PATIENT
  Age: 7 Year
  Sex: Male
  Weight: 16 kg

DRUGS (13)
  1. TEDUGLUTIDE [Suspect]
     Active Substance: TEDUGLUTIDE
     Indication: Short-bowel syndrome
     Dosage: 0.08 MILLILITER, QD
     Dates: start: 2021
  2. TEDUGLUTIDE [Suspect]
     Active Substance: TEDUGLUTIDE
     Dosage: 0.08 MILLILITER, QD
  3. TEDUGLUTIDE [Suspect]
     Active Substance: TEDUGLUTIDE
     Dosage: 0.08 MILLILITER, QD
  4. TEDUGLUTIDE [Suspect]
     Active Substance: TEDUGLUTIDE
     Dosage: 0.08 MILLILITER, QD
  5. TEDUGLUTIDE [Suspect]
     Active Substance: TEDUGLUTIDE
     Dosage: 0.08 MILLILITER, QD
  6. TEDUGLUTIDE [Suspect]
     Active Substance: TEDUGLUTIDE
     Dosage: 0.08 MILLILITER, QD
  7. TUMS [Concomitant]
     Active Substance: CALCIUM CARBONATE
  8. Ironup [Concomitant]
  9. NEOMYCIN SULFATE [Concomitant]
     Active Substance: NEOMYCIN SULFATE
  10. MELATONIN [Concomitant]
     Active Substance: MELATONIN
  11. IRON [Concomitant]
     Active Substance: IRON
  12. TPN [Concomitant]
     Active Substance: AMINO ACIDS\DEXTROSE\ELECTROLYTES NOS\SOYBEAN OIL
  13. FERROUS SULFATE [Concomitant]
     Active Substance: FERROUS SULFATE

REACTIONS (16)
  - Vascular device infection [Unknown]
  - Pyrexia [Unknown]
  - Behaviour disorder [Unknown]
  - Rhinovirus infection [Unknown]
  - Respiratory syncytial virus infection [Unknown]
  - Dehydration [Unknown]
  - Viral infection [Unknown]
  - Feeling abnormal [Unknown]
  - Device breakage [Unknown]
  - Insurance issue [Unknown]
  - Inappropriate schedule of product administration [Unknown]
  - Product use issue [Unknown]
  - Bacterial infection [Not Recovered/Not Resolved]
  - Drug ineffective [Unknown]
  - Gastrointestinal microorganism overgrowth [Not Recovered/Not Resolved]
  - Injection site reaction [Unknown]

NARRATIVE: CASE EVENT DATE: 20230908
